FAERS Safety Report 23695352 (Version 1)
Quarter: 2024Q2

REPORT INFORMATION
  Report Type: Spontaneous
  Country: IT (occurrence: IT)
  Receive Date: 20240402
  Receipt Date: 20240402
  Transmission Date: 20240716
  Serious: Yes (Hospitalization)
  Sender: FDA-Public Use
  Company Number: IT-NOVITIUMPHARMA-2024ITNVP00382

PATIENT
  Age: 2 Year
  Sex: Male

DRUGS (3)
  1. CARBAMAZEPINE [Suspect]
     Active Substance: CARBAMAZEPINE
     Indication: Gelastic seizure
     Dosage: 9ML
  2. LEVETIRACETAM [Concomitant]
     Active Substance: LEVETIRACETAM
     Indication: Gelastic seizure
  3. CORTICOTROPIN [Concomitant]
     Active Substance: CORTICOTROPIN
     Indication: Gelastic seizure

REACTIONS (1)
  - Drug ineffective [Unknown]
